FAERS Safety Report 13290874 (Version 2)
Quarter: 2017Q1

REPORT INFORMATION
  Report Type: Spontaneous
  Country: TR (occurrence: TR)
  Receive Date: 20170302
  Receipt Date: 20170321
  Transmission Date: 20170428
  Serious: Yes (Hospitalization, Other)
  Sender: FDA-Public Use
  Company Number: TR-ELI_LILLY_AND_COMPANY-TR201612005890

PATIENT
  Age: 27 Year
  Sex: Female

DRUGS (7)
  1. AZILECT [Concomitant]
     Active Substance: RASAGILINE MESYLATE
     Indication: PARKINSON^S DISEASE
     Route: 065
  2. MODIWAKE [Concomitant]
     Route: 065
  3. ROPINIROLE HYDROCHLORIDE. [Concomitant]
     Active Substance: ROPINIROLE HYDROCHLORIDE
     Indication: PARKINSON^S DISEASE
     Route: 065
  4. PROZAC [Suspect]
     Active Substance: FLUOXETINE HYDROCHLORIDE
     Indication: DEPRESSION
     Dosage: UNK, BID
     Route: 065
     Dates: start: 2015
  5. PROZAC [Suspect]
     Active Substance: FLUOXETINE HYDROCHLORIDE
     Indication: PRODUCT USED FOR UNKNOWN INDICATION
     Dosage: UNK, UNKNOWN
     Route: 065
     Dates: start: 2011
  6. STALEVO                            /01530202/ [Concomitant]
     Active Substance: LEVOCETIRIZINE DIHYDROCHLORIDE
     Indication: PARKINSON^S DISEASE
     Route: 065
  7. LUSTRAL [Concomitant]
     Active Substance: SERTRALINE HYDROCHLORIDE
     Route: 065

REACTIONS (15)
  - Crying [Unknown]
  - Intentional overdose [Recovered/Resolved]
  - Head discomfort [Unknown]
  - Intentional self-injury [Recovered/Resolved]
  - Altered state of consciousness [Recovered/Resolved]
  - Suicide attempt [Recovered/Resolved]
  - Confusional state [Unknown]
  - Suicidal ideation [Recovered/Resolved]
  - Malaise [Unknown]
  - Psychomotor hyperactivity [Unknown]
  - Maternal exposure during pregnancy [Recovered/Resolved]
  - Paralysis [Unknown]
  - Memory impairment [Unknown]
  - Restlessness [Unknown]
  - Somnolence [Unknown]
